FAERS Safety Report 6740082-5 (Version None)
Quarter: 2010Q2

REPORT INFORMATION
  Report Type: 
  Country: None (occurrence: None)
  Receive Date: 20100525
  Receipt Date: 20090827
  Transmission Date: 20101027
  Serious: No
  Sender: FDA-Public Use
  Company Number: A0804747A

PATIENT
  Age: 84 Year
  Sex: Female

DRUGS (2)
  1. BACTROBAN [Suspect]
     Route: 061
     Dates: start: 20090825
  2. CHEMOTHERAPY [Concomitant]

REACTIONS (1)
  - BLISTER [None]
